FAERS Safety Report 15318830 (Version 1)
Quarter: 2018Q3

REPORT INFORMATION
  Report Type: Spontaneous
  Country: US (occurrence: US)
  Receive Date: 20180819
  Receipt Date: 20180819
  Transmission Date: 20181010
  Serious: Yes (Hospitalization, Disabling)
  Sender: FDA-Public Use
  Company Number: None

PATIENT
  Age: 9 Year
  Sex: Female
  Weight: 23.4 kg

DRUGS (2)
  1. ZONEGRAN [Concomitant]
     Active Substance: ZONISAMIDE
  2. MIRALAX [Suspect]
     Active Substance: POLYETHYLENE GLYCOL 3350
     Indication: CONSTIPATION
     Route: 048
     Dates: start: 20180418, end: 20180810

REACTIONS (19)
  - Fear [None]
  - Dysarthria [None]
  - Emotional distress [None]
  - Screaming [None]
  - Nervous system disorder [None]
  - Balance disorder [None]
  - Blindness transient [None]
  - Deafness transitory [None]
  - Confusional state [None]
  - Photophobia [None]
  - Disorientation [None]
  - Agitation [None]
  - Vertigo [None]
  - Dysgraphia [None]
  - Hyperacusis [None]
  - Insomnia [None]
  - Visual impairment [None]
  - Migraine [None]
  - Fatigue [None]

NARRATIVE: CASE EVENT DATE: 20180418
